FAERS Safety Report 7371458-3 (Version None)
Quarter: 2011Q1

REPORT INFORMATION
  Report Type: 
  Country: None (occurrence: None)
  Receive Date: 20110324
  Receipt Date: 20110310
  Transmission Date: 20110831
  Serious: Yes (Hospitalization, Disabling, Other)
  Sender: FDA-Public Use
  Company Number: DE-BRISTOL-MYERS SQUIBB COMPANY-15569593

PATIENT
  Age: 57 Year
  Sex: Male
  Weight: 70 kg

DRUGS (4)
  1. SPRYCEL [Suspect]
     Indication: CHRONIC MYELOID LEUKAEMIA
     Dosage: PAUSED SINCE 03JAN2011 AND DISCONTINUED ON 18JAN2011
     Route: 048
     Dates: end: 20110118
  2. INTERFERON ALFA [Suspect]
     Indication: CHRONIC MYELOID LEUKAEMIA
     Dosage: 1DF= 1.0 MILLION;08DEC2009-DEC2010
     Dates: start: 20091208
  3. IMATINIB MESYLATE [Suspect]
     Indication: CHRONIC MYELOID LEUKAEMIA
     Dosage: 15SEP2009-DEC2010
     Dates: start: 20090915
  4. HYDROXYUREA [Suspect]
     Dates: start: 20090902

REACTIONS (10)
  - THROMBOCYTOPENIA [None]
  - TRANSAMINASES INCREASED [None]
  - RESPIRATORY DISORDER [None]
  - NEOPLASM MALIGNANT [None]
  - PLEURAL EFFUSION [None]
  - CHOLESTASIS [None]
  - LEUKOPENIA [None]
  - PERICARDIAL EFFUSION [None]
  - PNEUMONITIS [None]
  - PNEUMONIA [None]
